FAERS Safety Report 20310690 (Version 1)
Quarter: 2022Q1

REPORT INFORMATION
  Report Type: Spontaneous
  Country: US (occurrence: None)
  Receive Date: 20220107
  Receipt Date: 20220107
  Transmission Date: 20220423
  Serious: Yes (Other)
  Sender: FDA-Public Use
  Company Number: None

PATIENT
  Age: 77 Year
  Sex: Female
  Weight: 63 kg

DRUGS (1)
  1. SOTROVIMAB [Suspect]
     Active Substance: SOTROVIMAB
     Dates: start: 20220106, end: 20220106

REACTIONS (4)
  - Injection site swelling [None]
  - Muscle tightness [None]
  - Injection site pain [None]
  - Swelling [None]

NARRATIVE: CASE EVENT DATE: 20220106
